FAERS Safety Report 9834488 (Version 2)
Quarter: 2014Q1

REPORT INFORMATION
  Report Type: Spontaneous
  Country: FR (occurrence: FR)
  Receive Date: 20140122
  Receipt Date: 20140122
  Transmission Date: 20141002
  Serious: Yes (Death, Other)
  Sender: FDA-Public Use
  Company Number: FR-ELI_LILLY_AND_COMPANY-FR201401000540

PATIENT
  Age: 42 Year
  Sex: Female

DRUGS (8)
  1. GEMZAR [Suspect]
     Indication: OVARIAN NEOPLASM
     Dosage: UNK, UNKNOWN
     Route: 042
     Dates: start: 20131108
  2. GEMZAR [Suspect]
     Indication: UTERINE CANCER
  3. GEMZAR [Suspect]
     Indication: METASTASES TO PERITONEUM
  4. GEMZAR [Suspect]
     Indication: METASTASES TO LIVER
  5. ELOXATINE [Suspect]
     Indication: OVARIAN NEOPLASM
     Dosage: UNK, UNKNOWN
     Route: 042
     Dates: start: 20131108
  6. ELOXATINE [Suspect]
     Indication: UTERINE CANCER
  7. ELOXATINE [Suspect]
     Indication: METASTASES TO PERITONEUM
  8. ELOXATINE [Suspect]
     Indication: METASTASES TO LIVER

REACTIONS (4)
  - Death [Fatal]
  - Anaemia [Not Recovered/Not Resolved]
  - Thrombocytopenia [Not Recovered/Not Resolved]
  - Off label use [Unknown]
